FAERS Safety Report 11545518 (Version 1)
Quarter: 2015Q3

REPORT INFORMATION
  Report Type: Spontaneous
  Country: IR (occurrence: IR)
  Receive Date: 20150924
  Receipt Date: 20150924
  Transmission Date: 20151125
  Serious: Yes (Hospitalization)
  Sender: FDA-Public Use
  Company Number: PHHY2015IR113547

PATIENT
  Age: 51 Year
  Sex: Male

DRUGS (4)
  1. PREDNISOLONE. [Suspect]
     Active Substance: PREDNISOLONE
     Dosage: 35 MG, QD
     Route: 065
  2. DEXAMETHASONE. [Suspect]
     Active Substance: DEXAMETHASONE
     Indication: PEMPHIGUS
     Dosage: 8 MG, BID
     Route: 042
  3. PREDNISOLONE. [Suspect]
     Active Substance: PREDNISOLONE
     Indication: PEMPHIGUS
     Dosage: 50 MG, QD
     Route: 065
  4. PREDNISOLONE. [Suspect]
     Active Substance: PREDNISOLONE
     Dosage: 60 MG, QD
     Route: 065

REACTIONS (1)
  - Kaposi^s sarcoma [Not Recovered/Not Resolved]
